FAERS Safety Report 24938675 (Version 4)
Quarter: 2025Q1

REPORT INFORMATION
  Report Type: Spontaneous
  Country: US (occurrence: US)
  Receive Date: 20250206
  Receipt Date: 20250312
  Transmission Date: 20250408
  Serious: No
  Sender: SANOFI AVENTIS
  Company Number: US-SANOFI-02398744

PATIENT
  Age: 11 Year
  Sex: Male
  Weight: 63.18 kg

DRUGS (3)
  1. DUPIXENT [Suspect]
     Active Substance: DUPILUMAB
     Indication: Eosinophilic oesophagitis
     Route: 058
     Dates: start: 202411
  2. DUPIXENT [Suspect]
     Active Substance: DUPILUMAB
     Indication: Dysphagia
     Dosage: 300 MG, QOW
     Route: 058
     Dates: start: 20250201
  3. DUPIXENT [Suspect]
     Active Substance: DUPILUMAB
     Dosage: 300 MG, QOW
     Route: 030

REACTIONS (6)
  - Fear of injection [Unknown]
  - Exposure via skin contact [Unknown]
  - Accidental exposure to product [Unknown]
  - Off label use [Unknown]
  - Product use in unapproved indication [Unknown]
  - Incorrect route of product administration [Unknown]

NARRATIVE: CASE EVENT DATE: 20241101
